FAERS Safety Report 7445052-X (Version None)
Quarter: 2011Q2

REPORT INFORMATION
  Report Type: 
  Country: None (occurrence: None)
  Receive Date: 20110427
  Receipt Date: 20110427
  Transmission Date: 20111010
  Serious: Yes (Other)
  Sender: FDA-Public Use
  Company Number: None

PATIENT
  Age: 51 Year
  Sex: Female

DRUGS (9)
  1. AMPYRA [Suspect]
     Indication: MULTIPLE SCLEROSIS
     Dosage: AMPYRA 10 MG Q12H ORALLY
     Route: 048
     Dates: start: 20110201
  2. HYDROCODONE BITARTRATE AND ACETAMINOPHEN [Concomitant]
  3. CYMBALTA [Concomitant]
  4. CEPHADRYN [Concomitant]
  5. AMPHETAMINE [Concomitant]
  6. ONDANSETRON [Concomitant]
  7. CLONAZEPAM [Concomitant]
  8. BACLOFEN [Concomitant]
  9. ADDERALL 10 [Concomitant]

REACTIONS (4)
  - ACNE [None]
  - TOOTH FRACTURE [None]
  - RASH [None]
  - TEETH BRITTLE [None]
